FAERS Safety Report 18105582 (Version 7)
Quarter: 2021Q4

REPORT INFORMATION
  Report Type: Report from Study
  Country: NL (occurrence: NL)
  Receive Date: 20200803
  Receipt Date: 20211202
  Transmission Date: 20220303
  Serious: Yes (Other)
  Sender: FDA-Public Use
  Company Number: NL-AMGEN-NLDSL2019066683

PATIENT
  Age: 72 Year
  Sex: Female

DRUGS (22)
  1. ROSUVASTATIN [Suspect]
     Active Substance: ROSUVASTATIN
     Indication: Product used for unknown indication
     Dosage: 20 MILLIGRAM, QD, (AS CA-SALT), 1D1T
     Route: 065
  2. XGEVA [Suspect]
     Active Substance: DENOSUMAB
     Indication: Prophylaxis
     Dosage: 120 MILLIGRAM, MONTHLY(120 MILLIGRAM/1,7ML, Q4WK)
     Route: 058
  3. XGEVA [Suspect]
     Active Substance: DENOSUMAB
     Dosage: 120 MILLIGRAM, MONTHLY(120 MILLIGRAM/1,7ML, Q4WK)
     Route: 058
  4. XGEVA [Suspect]
     Active Substance: DENOSUMAB
     Dosage: 120 MILLIGRAM, MONTHLY(120 MILLIGRAM/1,7ML, Q4WK)
     Route: 058
     Dates: start: 20190326
  5. XGEVA [Suspect]
     Active Substance: DENOSUMAB
     Dosage: 120 MILLIGRAM, MONTHLY(120 MILLIGRAM/1,7ML, Q4WK)
     Route: 058
  6. XGEVA [Suspect]
     Active Substance: DENOSUMAB
     Dosage: 120 MILLIGRAM, MONTHLY(120 MILLIGRAM/1,7ML, Q4WK)
     Route: 058
     Dates: start: 20190423
  7. OMEPRAZOLE [Concomitant]
     Active Substance: OMEPRAZOLE
     Dosage: 20 MILLIGRAM, QD (1D1T)
  8. MICONAZOL                          /00310801/ [Concomitant]
     Dosage: 20 MILLIGRAM PER GRAM, 2D
  9. MICONAZOL                          /00310801/ [Concomitant]
     Dosage: 10 MILLIGRAM, QD
  10. CANNABIS SATIVA SUBSP. INDICA TOP [Concomitant]
     Active Substance: CANNABIS SATIVA SUBSP. INDICA TOP
     Dosage: 20 MILLIGRAM PER MILLILITRE, QD
  11. CANNABIS SATIVA SUBSP. INDICA TOP [Concomitant]
     Active Substance: CANNABIS SATIVA SUBSP. INDICA TOP
     Dosage: 1 DF, QD (20 MILLIGRAM PER MILLILITRE, QD)
  12. CALCIUM CARBONATE\CHOLECALCIFEROL [Concomitant]
     Active Substance: CALCIUM CARBONATE\CHOLECALCIFEROL
     Dosage: 1.25 800IE (500MG CA), QD (1D1T)
  13. CALCIUM CARBONATE\CHOLECALCIFEROL [Concomitant]
     Active Substance: CALCIUM CARBONATE\CHOLECALCIFEROL
     Dosage: 1.25 800IE (500MG CA), QD
  14. LETROZOLE [Concomitant]
     Active Substance: LETROZOLE
     Dosage: 2.5 MILLIGRAM, QD
  15. TRAVOPROST [Concomitant]
     Active Substance: TRAVOPROST
     Dosage: 40 MICROGRAM PER MILLIGRAM (FL 2,5ML), QD 1D1DR
  16. TRAVOPROST [Concomitant]
     Active Substance: TRAVOPROST
     Dosage: 1 DF, QD (40 MICROGRAM PER MILLIGRAM (FL 2,5ML), QD 1D1DR)
  17. MIZOLASTINE [Concomitant]
     Active Substance: MIZOLASTINE
     Dosage: 10 MILLIGRAM, QD, 1T
  18. LIDOCAINE [Concomitant]
     Active Substance: LIDOCAINE
     Dosage: 1 DOSAGE FORM, QD(UNK UNK, QD)
     Route: 054
  19. VASELINE CETOMACROGOL CREAM [Concomitant]
     Dosage: 10 PERCENT, BID(10 PERCENT, 2XD)
  20. TRIAMCINOLONE ACETONIDE [Concomitant]
     Active Substance: TRIAMCINOLONE ACETONIDE
     Dosage: 1 DOSAGE FORM, QD
  21. DORZOLAMIDE/TIMOLOL                /01419801/ [Concomitant]
     Dosage: 5/20MG/ML M 0,2ML Z CONS 1XD 1 DROP
  22. NAPROXEN [Concomitant]
     Active Substance: NAPROXEN
     Dosage: 250 MILLIGRAM,  3D1T

REACTIONS (11)
  - Pain in extremity [Not Recovered/Not Resolved]
  - Injection site pain [Unknown]
  - Cancer pain [Unknown]
  - Discomfort [Unknown]
  - Malaise [Unknown]
  - Dizziness [Unknown]
  - Arthralgia [Not Recovered/Not Resolved]
  - Breast cancer metastatic [Not Recovered/Not Resolved]
  - Eye movement disorder [Not Recovered/Not Resolved]
  - Headache [Not Recovered/Not Resolved]
  - Basal cell carcinoma [Unknown]

NARRATIVE: CASE EVENT DATE: 20190101
